FAERS Safety Report 10866360 (Version 1)
Quarter: 2015Q1

REPORT INFORMATION
  Report Type: Spontaneous
  Country: US (occurrence: None)
  Receive Date: 20150219
  Receipt Date: 20150219
  Transmission Date: 20150721
  Serious: Yes (Other)
  Sender: FDA-Public Use
  Company Number: None

PATIENT
  Age: 56 Year
  Sex: Female
  Weight: 71.67 kg

DRUGS (7)
  1. FLAX OIL [Concomitant]
  2. BENADRYL [Concomitant]
     Active Substance: DIPHENHYDRAMINE HYDROCHLORIDE
  3. ACETAMINOPHEN. [Concomitant]
     Active Substance: ACETAMINOPHEN
  4. LISINOPRIL. [Concomitant]
     Active Substance: LISINOPRIL
  5. ARMOUR THYROID [Concomitant]
     Active Substance: THYROID, PORCINE\THYROID, UNSPECIFIED
  6. CALCIUM [Concomitant]
     Active Substance: CALCIUM
  7. RECLAST [Suspect]
     Active Substance: ZOLEDRONIC ACID
     Indication: OSTEOPOROSIS
     Dosage: DATES OF USE: SINGLE INFUSION, 100 ML, INTO A VEIN
     Route: 042

REACTIONS (10)
  - Influenza like illness [None]
  - Arthralgia [None]
  - Hypoaesthesia [None]
  - Myalgia [None]
  - Body temperature increased [None]
  - Asthenia [None]
  - Viral infection [None]
  - Pain in extremity [None]
  - Fatigue [None]
  - Nausea [None]

NARRATIVE: CASE EVENT DATE: 20141009
